FAERS Safety Report 19927120 (Version 1)
Quarter: 2021Q4

REPORT INFORMATION
  Report Type: Spontaneous
  Country: CN (occurrence: CN)
  Receive Date: 20211006
  Receipt Date: 20211006
  Transmission Date: 20220303
  Serious: Yes (Hospitalization)
  Sender: FDA-Public Use
  Company Number: CN-BAXTER-2021BAX027708

PATIENT
  Age: 37 Year
  Sex: Female
  Weight: 56.5 kg

DRUGS (4)
  1. CYCLOPHOSPHAMIDE [Suspect]
     Active Substance: CYCLOPHOSPHAMIDE
     Indication: Breast cancer
     Dosage: 50 ML NORMAL SALINE + 0.9 G CYCLOPHOSPHAMIDE FOR INJECTION, DAY1
     Route: 040
     Dates: start: 20190704, end: 20190704
  2. SODIUM CHLORIDE [Suspect]
     Active Substance: SODIUM CHLORIDE
     Indication: Medication dilution
     Dosage: 50 ML NORMAL SALINE+ 0.9 G CYCLOPHOSPHAMIDE FOR INJECTION, DAY 1
     Route: 040
     Dates: start: 20190704, end: 20190704
  3. SODIUM CHLORIDE [Suspect]
     Active Substance: SODIUM CHLORIDE
     Dosage: 250ML NORMAL SALINE + 110 MG DOCETAXEL INJECTION, DAY 1
     Route: 041
     Dates: start: 20190704, end: 20190704
  4. DOCETAXEL [Suspect]
     Active Substance: DOCETAXEL
     Indication: Breast cancer
     Dosage: 250ML NORMAL SALINE + 110 MG DOCETAXEL INJECTION, DAY1
     Route: 041
     Dates: start: 20190704, end: 20190704

REACTIONS (1)
  - Myelosuppression [Recovered/Resolved]

NARRATIVE: CASE EVENT DATE: 20190712
